FAERS Safety Report 17662294 (Version 1)
Quarter: 2020Q2

REPORT INFORMATION
  Report Type: Spontaneous
  Country: US (occurrence: US)
  Receive Date: 20200413
  Receipt Date: 20200413
  Transmission Date: 20200713
  Serious: No
  Sender: FDA-Public Use
  Company Number: US-ASTRAZENECA-2020SE43557

PATIENT
  Sex: Female
  Weight: 72.6 kg

DRUGS (2)
  1. BYDUREON BCISE [Suspect]
     Active Substance: EXENATIDE
     Indication: DIABETES MELLITUS
     Route: 058
     Dates: start: 201909
  2. METFORMIN [Concomitant]
     Active Substance: METFORMIN HYDROCHLORIDE

REACTIONS (5)
  - Injection site haemorrhage [Recovered/Resolved]
  - Device leakage [Unknown]
  - Weight decreased [Not Recovered/Not Resolved]
  - Device malfunction [Unknown]
  - Product dose omission [Recovered/Resolved]
